FAERS Safety Report 9801720 (Version 1)
Quarter: 2014Q1

REPORT INFORMATION
  Report Type: Spontaneous
  Country: TR (occurrence: TR)
  Receive Date: 20140107
  Receipt Date: 20140107
  Transmission Date: 20141002
  Serious: Yes (Hospitalization)
  Sender: FDA-Public Use
  Company Number: PHHY2013TR154846

PATIENT
  Age: 29 Year
  Sex: Male

DRUGS (5)
  1. CLOZAPINE [Suspect]
     Indication: SCHIZOPHRENIA
     Dosage: 300 MG, UNK
     Route: 048
  2. CLOZAPINE [Suspect]
     Dosage: 100 MG, 30 TABLETS
     Route: 048
  3. QUETIAPINE [Concomitant]
     Dosage: 300 MG, PER DAY
  4. SERTRALINE [Concomitant]
     Dosage: 100 MG, PER DAY
  5. ARIPIPRAZOLE [Concomitant]
     Dosage: 15 MG, PER DAY

REACTIONS (6)
  - Metabolic acidosis [Recovering/Resolving]
  - Suicide attempt [Recovering/Resolving]
  - Epilepsy [Recovering/Resolving]
  - Urinary incontinence [Recovering/Resolving]
  - Confusional state [Recovering/Resolving]
  - Coma scale abnormal [Unknown]
